FAERS Safety Report 8581929-X (Version None)
Quarter: 2012Q3

REPORT INFORMATION
  Report Type: 
  Country: None (occurrence: None)
  Receive Date: 20120809
  Receipt Date: 20120727
  Transmission Date: 20120928
  Serious: Yes (Life-Threatening, Hospitalization)
  Sender: FDA-Public Use
  Company Number: FR-FRI-1000037437

PATIENT
  Sex: Male
  Weight: 70 kg

DRUGS (5)
  1. ANAFRANIL [Suspect]
     Indication: DEPRESSION
     Dosage: 75 MG
     Route: 048
     Dates: start: 20120710, end: 20120717
  2. NOCTAMIDE [Concomitant]
     Dosage: 1 DF AT BEDTIME
     Route: 048
  3. LORAZEPAM [Concomitant]
     Dosage: 2.5 MG
     Route: 048
  4. ESCITALOPRAM [Suspect]
     Indication: DEPRESSION
     Dosage: 20 MG
     Route: 048
     Dates: start: 20120710, end: 20120717
  5. PRAVASTATIN [Concomitant]
     Dosage: 20 MG
     Route: 048

REACTIONS (3)
  - BRAIN OEDEMA [None]
  - SEROTONIN SYNDROME [None]
  - HYPONATRAEMIA [None]
